FAERS Safety Report 8966190 (Version 1)
Quarter: 2012Q4

REPORT INFORMATION
  Report Type: 
  Country: IT (occurrence: IT)
  Receive Date: 20121217
  Receipt Date: 20121217
  Transmission Date: 20130627
  Serious: Yes (Other)
  Sender: FDA-Public Use
  Company Number: IT-PFIZER INC-2012304778

PATIENT
  Age: 64 Year
  Sex: Male

DRUGS (2)
  1. NEURONTIN [Suspect]
     Indication: NEURALGIA
     Dosage: 2100 mg, 1x/day
     Route: 048
     Dates: start: 20121023, end: 20121119
  2. TACHIPIRINA [Suspect]
     Indication: NEURALGIA
     Dosage: 3000 mg, 1x/day
     Route: 048
     Dates: start: 20121020, end: 20121106

REACTIONS (2)
  - Tongue oedema [Recovered/Resolved]
  - Penile oedema [Recovered/Resolved]
